FAERS Safety Report 16811637 (Version 3)
Quarter: 2021Q1

REPORT INFORMATION
  Report Type: Spontaneous
  Country: RS (occurrence: RS)
  Receive Date: 20190916
  Receipt Date: 20210302
  Transmission Date: 20210419
  Serious: Yes (Death, Hospitalization, Other)
  Sender: FDA-Public Use
  Company Number: RS-PFIZER INC-2019268614

PATIENT
  Age: 69 Year
  Sex: Female

DRUGS (5)
  1. MERONEM [Concomitant]
     Active Substance: MEROPENEM
     Dosage: UNK
  2. ECALTA [Suspect]
     Active Substance: ANIDULAFUNGIN
     Indication: CANDIDA INFECTION
     Dosage: 100 MG, 2X/DAY
     Dates: start: 20190620, end: 20190626
  3. LINEZOLID. [Concomitant]
     Active Substance: LINEZOLID
     Dosage: UNK
  4. COLISTIN [Concomitant]
     Active Substance: COLISTIN
     Dosage: UNK
  5. ECALTA [Suspect]
     Active Substance: ANIDULAFUNGIN
     Indication: SEPSIS
     Dosage: 200 MG, 1X/DAY
     Dates: start: 20190619, end: 20190620

REACTIONS (8)
  - Aspartate aminotransferase increased [Unknown]
  - Blood bilirubin unconjugated increased [Unknown]
  - Alanine aminotransferase increased [Unknown]
  - Procalcitonin increased [Unknown]
  - Decubitus ulcer [Fatal]
  - Blood alkaline phosphatase increased [Unknown]
  - Blood bilirubin increased [Unknown]
  - Gamma-glutamyltransferase increased [Unknown]

NARRATIVE: CASE EVENT DATE: 20190620
